FAERS Safety Report 21943169 (Version 1)
Quarter: 2023Q1

REPORT INFORMATION
  Report Type: Spontaneous
  Country: NL (occurrence: NL)
  Receive Date: 20230202
  Receipt Date: 20230202
  Transmission Date: 20230417
  Serious: Yes (Other)
  Sender: FDA-Public Use
  Company Number: None

PATIENT
  Sex: Male
  Weight: 69 kg

DRUGS (4)
  1. SULFAMETHOXAZOLE\TRIMETHOPRIM [Suspect]
     Active Substance: SULFAMETHOXAZOLE\TRIMETHOPRIM
     Indication: Bacterial test
     Dosage: 2 DOSAGE FORMS DAILY; 2 X PER DAY 1 PIECE, STRENGTH : 160/800 MG, 960, BRAND NAME NOT SPECIFIED
     Route: 065
     Dates: start: 20221230, end: 20230105
  2. CHLORTHALIDONE [Concomitant]
     Active Substance: CHLORTHALIDONE
     Indication: Product used for unknown indication
     Dosage: BRAND NAME NOT SPECIFIED
     Route: 065
  3. ENALAPRIL [Concomitant]
     Active Substance: ENALAPRIL
     Indication: Product used for unknown indication
     Dosage: BRAND NAME NOT SPECIFIED
     Route: 065
  4. ALLOPURINOL [Concomitant]
     Active Substance: ALLOPURINOL
     Indication: Product used for unknown indication
     Dosage: BRAND NAME NOT SPECIFIED
     Route: 065

REACTIONS (1)
  - Syncope [Recovering/Resolving]
